FAERS Safety Report 8517105-6 (Version None)
Quarter: 2012Q3

REPORT INFORMATION
  Report Type: 
  Country: None (occurrence: None)
  Receive Date: 20120718
  Receipt Date: 20120716
  Transmission Date: 20120928
  Serious: Yes (Other)
  Sender: FDA-Public Use
  Company Number: AU-PFIZER INC-2012170033

PATIENT
  Sex: Male

DRUGS (1)
  1. VARENICLINE TARTRATE [Suspect]
     Dosage: UNK

REACTIONS (6)
  - MUSCULAR WEAKNESS [None]
  - FATIGUE [None]
  - HYPOAESTHESIA [None]
  - MOVEMENT DISORDER [None]
  - INSOMNIA [None]
  - FEELING OF BODY TEMPERATURE CHANGE [None]
